FAERS Safety Report 7107778-7 (Version None)
Quarter: 2010Q4

REPORT INFORMATION
  Report Type: 
  Country: None (occurrence: None)
  Receive Date: 20101117
  Receipt Date: 20101104
  Transmission Date: 20110411
  Serious: Yes (Hospitalization, Other)
  Sender: FDA-Public Use
  Company Number: PHHY2010JP62346

PATIENT
  Age: 90 Year
  Sex: Male

DRUGS (3)
  1. DIOVAN [Interacting]
     Indication: HYPERTENSION
     Dosage: 80 MG DAILY
     Route: 048
  2. COVERSYL [Suspect]
     Dosage: 2 MG DAILY
     Route: 048
  3. CALCIUM ANTAGONIST [Concomitant]

REACTIONS (2)
  - COMPRESSION FRACTURE [None]
  - HYPONATRAEMIA [None]
